FAERS Safety Report 8023835-5 (Version None)
Quarter: 2012Q1

REPORT INFORMATION
  Report Type: 
  Country: None (occurrence: None)
  Receive Date: 20120105
  Receipt Date: 20111228
  Transmission Date: 20120608
  Serious: Yes (Disabling)
  Sender: FDA-Public Use
  Company Number: FR-JNJFOC-20111212142

PATIENT
  Age: 38 Year
  Sex: Female
  Weight: 84 kg

DRUGS (9)
  1. ACUPAN [Suspect]
     Indication: PRODUCT USED FOR UNKNOWN INDICATION
     Route: 048
  2. REMICADE [Suspect]
     Dosage: DOSE ALSO REPORTED AS 7.5 MG/KG
     Route: 042
     Dates: start: 20090101
  3. LAMALINE [Suspect]
     Indication: PRODUCT USED FOR UNKNOWN INDICATION
     Route: 048
  4. REMICADE [Suspect]
     Indication: CROHN'S DISEASE
     Route: 042
     Dates: start: 20111007
  5. VOLTAREN [Concomitant]
  6. REMICADE [Suspect]
     Dosage: 19TH INFLIXIMAB INFUSION
     Route: 042
     Dates: start: 20111115
  7. REMICADE [Suspect]
     Indication: ANKYLOSING SPONDYLITIS
     Dosage: DOSE ALSO REPORTED AS 7.5 MG/KG
     Route: 042
     Dates: start: 20090101
  8. REMICADE [Suspect]
     Dosage: 19TH INFLIXIMAB INFUSION
     Route: 042
     Dates: start: 20111115
  9. REMICADE [Suspect]
     Route: 042
     Dates: start: 20111007

REACTIONS (2)
  - TOOTH FRACTURE [None]
  - TOOTH DISORDER [None]
